FAERS Safety Report 9343801 (Version 1)
Quarter: 2013Q2

REPORT INFORMATION
  Report Type: Spontaneous
  Country: GB (occurrence: None)
  Receive Date: 20130610
  Receipt Date: 20130610
  Transmission Date: 20140414
  Serious: Yes (Hospitalization)
  Sender: FDA-Public Use
  Company Number: AUR-APL-2013-04484

PATIENT
  Age: 74 Year
  Sex: 0

DRUGS (8)
  1. OLANZAPINE (OLANZAPINE) [Suspect]
     Indication: PRODUCT USED FOR UNKNOWN INDICATION
     Route: 048
  2. DIAZEPAM (DIAZEPAM) [Concomitant]
  3. LEVOTHYROXINE (LEVOTHYROXINE) [Concomitant]
  4. LISINOPRIL (LISINOPRIL) [Concomitant]
  5. LORZEPAM (LORAZEPAM) [Concomitant]
  6. PARACETAMOL (PARACETAMOL) [Concomitant]
  7. SALBUTAMOL (SALBUTAMOL) [Concomitant]
  8. SERTALINE (SERTRALINE) [Concomitant]

REACTIONS (1)
  - Parkinsonism [None]
